FAERS Safety Report 6603697-0 (Version None)
Quarter: 2010Q1

REPORT INFORMATION
  Report Type: 
  Country: None (occurrence: None)
  Receive Date: 20100226
  Receipt Date: 20100218
  Transmission Date: 20100710
  Serious: Yes (Hospitalization)
  Sender: FDA-Public Use
  Company Number: US-SANOFI-AVENTIS-2010SA006320

PATIENT
  Age: 71 Year
  Sex: Female
  Weight: 83.91 kg

DRUGS (4)
  1. LANTUS [Suspect]
     Indication: TYPE 1 DIABETES MELLITUS
     Dosage: MEDICATION STOPPED DAY BEFORE ADMISSION TO HOSPITAL. DOSE:65 UNIT(S)
     Route: 058
     Dates: start: 20030101
  2. OPTICLICK [Suspect]
     Indication: DIABETES MELLITUS
     Dosage: STOPPED DAY BEFORE HOSPITALIZATION.
     Dates: start: 20050101
  3. HUMALOG [Concomitant]
     Dosage: CONSUMERWAS TAKING HUMALOG ON SLIDING SCALEDURING HER HOSPITALIZATION.
     Dates: start: 20091124, end: 20100113
  4. ANTIBIOTICS [Concomitant]
     Indication: INFECTION

REACTIONS (2)
  - ESCHERICHIA INFECTION [None]
  - INTERVERTEBRAL DISC DISORDER [None]
